FAERS Safety Report 4398814-X (Version None)
Quarter: 2004Q3

REPORT INFORMATION
  Report Type: 
  Country: None (occurrence: None)
  Receive Date: 20040712
  Receipt Date: 20040702
  Transmission Date: 20050211
  Serious: Yes (Hospitalization)
  Sender: FDA-Public Use
  Company Number: 2004-BP-05283RO

PATIENT
  Age: 54 Year
  Sex: Female

DRUGS (3)
  1. ROXICET [Suspect]
     Indication: PAIN
     Dosage: SEE TEXT AS REQUIRED, PO
     Route: 048
  2. FENTANYL [Suspect]
     Indication: PAIN
     Dosage: 25 TO 50 MICROGRAM/HR, 1 IN 72 HOURS (SEE TEXT), TO
     Route: 061
     Dates: start: 20030101
  3. NEURONTIN [Concomitant]

REACTIONS (8)
  - ARRHYTHMIA [None]
  - CARDIAC FLUTTER [None]
  - DIARRHOEA [None]
  - MEDICATION ERROR [None]
  - NAUSEA [None]
  - PAIN EXACERBATED [None]
  - PAIN IN EXTREMITY [None]
  - VOMITING [None]
